FAERS Safety Report 9814797 (Version 2)
Quarter: 2014Q1

REPORT INFORMATION
  Report Type: Spontaneous
  Country: MY (occurrence: MY)
  Receive Date: 20140113
  Receipt Date: 20140129
  Transmission Date: 20141002
  Serious: Yes (Other)
  Sender: FDA-Public Use
  Company Number: ALCN2014MY000484

PATIENT
  Age: 1 Month
  Sex: Female
  Weight: 1.17 kg

DRUGS (1)
  1. CYCLOGYL [Suspect]
     Indication: MYDRIASIS
     Dosage: 1 UNK, UNK
     Route: 047
     Dates: start: 20120827, end: 20120827

REACTIONS (3)
  - Cyanosis [Recovered/Resolved]
  - Bradycardia [Recovered/Resolved]
  - Oxygen saturation decreased [Recovered/Resolved]
